FAERS Safety Report 25887945 (Version 1)
Quarter: 2025Q4

REPORT INFORMATION
  Report Type: Spontaneous
  Country: EU (occurrence: EU)
  Receive Date: 20251007
  Receipt Date: 20251007
  Transmission Date: 20260117
  Serious: Yes (Other)
  Sender: VIIV
  Company Number: EU-VIIV HEALTHCARE-PT2025EME125169

PATIENT
  Sex: Male

DRUGS (1)
  1. DOVATO [Suspect]
     Active Substance: DOLUTEGRAVIR SODIUM\LAMIVUDINE
     Indication: HIV infection
     Dosage: UNK

REACTIONS (2)
  - Kaposi^s sarcoma [Unknown]
  - Oesophageal candidiasis [Unknown]
